FAERS Safety Report 11143520 (Version 15)
Quarter: 2021Q1

REPORT INFORMATION
  Report Type: Other
  Country: DE (occurrence: DE)
  Receive Date: 20150526
  Receipt Date: 20210223
  Transmission Date: 20210419
  Serious: Yes (Hospitalization, Other)
  Sender: FDA-Public Use
  Company Number: DE-ROCHE-1476070

PATIENT
  Age: 69 Year
  Sex: Female

DRUGS (13)
  1. ROACTEMRA [Suspect]
     Active Substance: TOCILIZUMAB
     Route: 058
     Dates: start: 20140614
  2. ROACTEMRA [Suspect]
     Active Substance: TOCILIZUMAB
     Indication: RHEUMATOID ARTHRITIS
     Route: 058
     Dates: start: 20140814, end: 201609
  3. BERLOSIN [Concomitant]
     Active Substance: METAMIZOLE
  4. BISOPROLOL [Concomitant]
     Active Substance: BISOPROLOL
     Indication: ARRHYTHMIA
  5. VOLTAREN [Concomitant]
     Active Substance: DICLOFENAC SODIUM
     Indication: BACK PAIN
  6. ROACTEMRA [Suspect]
     Active Substance: TOCILIZUMAB
     Route: 058
     Dates: start: 20141106
  7. ROACTEMRA [Suspect]
     Active Substance: TOCILIZUMAB
     Indication: RHEUMATOID ARTHRITIS
     Route: 042
     Dates: start: 201612
  8. IBUFLAM [Concomitant]
  9. PANTOPRAZOL [Concomitant]
     Active Substance: PANTOPRAZOLE SODIUM
  10. IBUPROFEN. [Concomitant]
     Active Substance: IBUPROFEN
  11. NAPROXEN. [Concomitant]
     Active Substance: NAPROXEN
     Dosage: 500 UNIT NOT REPORTED
  12. OPIPRAMOL [Suspect]
     Active Substance: OPIPRAMOL
     Indication: PRODUCT USED FOR UNKNOWN INDICATION
     Route: 065
     Dates: start: 20190211
  13. CLOPIDOGREL [Suspect]
     Active Substance: CLOPIDOGREL BISULFATE
     Indication: PRODUCT USED FOR UNKNOWN INDICATION
     Route: 065

REACTIONS (48)
  - Memory impairment [Unknown]
  - Alopecia [Not Recovered/Not Resolved]
  - Joint swelling [Not Recovered/Not Resolved]
  - Nausea [Unknown]
  - Mass [Not Recovered/Not Resolved]
  - Ear pain [Not Recovered/Not Resolved]
  - Hyperhidrosis [Recovered/Resolved]
  - Hypoaesthesia [Not Recovered/Not Resolved]
  - Pain in extremity [Recovering/Resolving]
  - Hypoaesthesia oral [Recovered/Resolved]
  - Restlessness [Recovering/Resolving]
  - Dizziness [Unknown]
  - Rhinorrhoea [Not Recovered/Not Resolved]
  - Arthralgia [Unknown]
  - Sleep disorder [Unknown]
  - Skin discolouration [Recovered/Resolved]
  - Cystitis noninfective [Recovered/Resolved]
  - Peripheral coldness [Not Recovered/Not Resolved]
  - Pain in extremity [Recovered/Resolved]
  - Eye inflammation [Recovering/Resolving]
  - Palpitations [Unknown]
  - Skin atrophy [Unknown]
  - Blindness transient [Not Recovered/Not Resolved]
  - Pyelonephritis [Recovered/Resolved]
  - Back pain [Not Recovered/Not Resolved]
  - Aggression [Unknown]
  - Pulpitis dental [Recovered/Resolved]
  - Eye inflammation [Recovered/Resolved]
  - Carpal tunnel decompression [Recovering/Resolving]
  - Dizziness [Recovered/Resolved]
  - Arthralgia [Recovering/Resolving]
  - Hypoaesthesia [Recovered/Resolved]
  - Fatigue [Recovered/Resolved]
  - Headache [Recovering/Resolving]
  - Abdominal pain [Recovering/Resolving]
  - Bronchitis [Recovered/Resolved]
  - Foot deformity [Not Recovered/Not Resolved]
  - Hypovitaminosis [Recovered/Resolved]
  - Dyspepsia [Recovering/Resolving]
  - Cataract [Recovered/Resolved]
  - Photosensitivity reaction [Recovered/Resolved]
  - Drug intolerance [Unknown]
  - Anxiety [Not Recovered/Not Resolved]
  - Oropharyngeal pain [Not Recovered/Not Resolved]
  - Arrhythmia [Not Recovered/Not Resolved]
  - Cyst [Not Recovered/Not Resolved]
  - Drug interaction [Unknown]
  - Rhinorrhoea [Recovered/Resolved]

NARRATIVE: CASE EVENT DATE: 20140814
